FAERS Safety Report 5902956-4 (Version None)
Quarter: 2008Q3

REPORT INFORMATION
  Report Type: 
  Country: None (occurrence: None)
  Receive Date: 20080929
  Receipt Date: 20080929
  Transmission Date: 20090109
  Serious: Yes (Hospitalization)
  Sender: FDA-Public Use
  Company Number: None

PATIENT
  Sex: Male
  Weight: 82.7 kg

DRUGS (1)
  1. NEULASTA [Suspect]
     Indication: DRUG THERAPY
     Dates: start: 20080911, end: 20080911

REACTIONS (20)
  - ACUTE RESPIRATORY DISTRESS SYNDROME [None]
  - ASTHENIA [None]
  - ATRIAL FIBRILLATION [None]
  - CLOSTRIDIAL INFECTION [None]
  - DRUG TOXICITY [None]
  - DYSPNOEA EXERTIONAL [None]
  - FATIGUE [None]
  - FLANK PAIN [None]
  - HAEMATEMESIS [None]
  - HAEMOPTYSIS [None]
  - LEUKAEMIA [None]
  - LEUKOCYTOSIS [None]
  - LEUKOPENIA [None]
  - NAUSEA [None]
  - PULMONARY ALVEOLAR HAEMORRHAGE [None]
  - RENAL FAILURE [None]
  - RESPIRATORY FAILURE [None]
  - THROMBOCYTOPENIA [None]
  - TRANSFUSION-RELATED ACUTE LUNG INJURY [None]
  - URINARY TRACT INFECTION PSEUDOMONAL [None]
